FAERS Safety Report 15670141 (Version 1)
Quarter: 2018Q4

REPORT INFORMATION
  Report Type: Spontaneous
  Country: BE (occurrence: BE)
  Receive Date: 20181129
  Receipt Date: 20181129
  Transmission Date: 20190205
  Serious: Yes (Other)
  Sender: FDA-Public Use
  Company Number: BE-ABBVIE-18K-013-2571677-00

PATIENT
  Age: 29 Year
  Sex: Female

DRUGS (13)
  1. HUMIRA [Suspect]
     Active Substance: ADALIMUMAB
     Route: 058
     Dates: start: 201102, end: 201203
  2. HUMIRA [Suspect]
     Active Substance: ADALIMUMAB
     Route: 058
     Dates: end: 201611
  3. HUMIRA [Suspect]
     Active Substance: ADALIMUMAB
     Route: 058
     Dates: start: 201203
  4. HUMIRA [Suspect]
     Active Substance: ADALIMUMAB
     Route: 058
     Dates: start: 201611
  5. HUMIRA [Suspect]
     Active Substance: ADALIMUMAB
     Route: 058
     Dates: start: 201604
  6. HUMIRA [Suspect]
     Active Substance: ADALIMUMAB
     Indication: CROHN^S DISEASE
     Dosage: UNIT DOSE: 160MG (WEEK 0)
     Route: 058
     Dates: start: 200811, end: 200811
  7. HUMIRA [Suspect]
     Active Substance: ADALIMUMAB
     Dosage: UNIT DOSE: 80MG (WEEK 2)
     Route: 058
  8. HUMIRA [Suspect]
     Active Substance: ADALIMUMAB
     Dosage: UNIT DOSE: 40MG (FROM WEEK 4  AND ONWARDS EVERY OTHER WEEK)
     Route: 058
     Dates: end: 201102
  9. AZATHIOPRINE. [Concomitant]
     Active Substance: AZATHIOPRINE
     Indication: PRODUCT USED FOR UNKNOWN INDICATION
     Dates: start: 1996, end: 2006
  10. AZATHIOPRINE. [Concomitant]
     Active Substance: AZATHIOPRINE
     Dates: start: 201102
  11. AZATHIOPRINE. [Concomitant]
     Active Substance: AZATHIOPRINE
     Dates: start: 201203
  12. STELARA [Concomitant]
     Active Substance: USTEKINUMAB
     Indication: PRODUCT USED FOR UNKNOWN INDICATION
  13. HUMIRA [Suspect]
     Active Substance: ADALIMUMAB
     Route: 058
     Dates: start: 201410

REACTIONS (9)
  - Drug effect incomplete [Unknown]
  - Exposure during pregnancy [Unknown]
  - Gastroenteritis [Unknown]
  - Haemorrhage [Unknown]
  - Diarrhoea [Unknown]
  - Normal newborn [Unknown]
  - Drug effect decreased [Recovered/Resolved]
  - Drug effect incomplete [Recovered/Resolved]
  - Cytomegalovirus colitis [Unknown]

NARRATIVE: CASE EVENT DATE: 201102
